FAERS Safety Report 13880484 (Version 1)
Quarter: 2017Q3

REPORT INFORMATION
  Report Type: Spontaneous
  Country: US (occurrence: US)
  Receive Date: 20170815
  Receipt Date: 20170815
  Transmission Date: 20171127
  Serious: Yes (Other)
  Sender: FDA-Public Use
  Company Number: None

PATIENT
  Sex: Male
  Weight: 90 kg

DRUGS (5)
  1. ELIQUISS [Concomitant]
  2. AMIODARONE 200MG [Suspect]
     Active Substance: AMIODARONE
     Indication: ATRIAL FIBRILLATION
     Dosage: ?          QUANTITY:1 TABLET(S);?
     Route: 048
     Dates: start: 20170530, end: 20170814
  3. ANDROGEN [Concomitant]
     Active Substance: UNSPECIFIED INGREDIENT
  4. LOW DOSE ASPIRIN [Concomitant]
     Active Substance: ASPIRIN
  5. PRAVASTATIN. [Concomitant]
     Active Substance: PRAVASTATIN

REACTIONS (2)
  - Optic ischaemic neuropathy [None]
  - Blindness unilateral [None]

NARRATIVE: CASE EVENT DATE: 20170810
